FAERS Safety Report 10730043 (Version 3)
Quarter: 2015Q1

REPORT INFORMATION
  Report Type: Spontaneous
  Country: US (occurrence: US)
  Receive Date: 20150122
  Receipt Date: 20150127
  Transmission Date: 20150721
  Serious: No
  Sender: FDA-Public Use
  Company Number: US-GLAXOSMITHKLINE-A0957845A

PATIENT

DRUGS (11)
  1. BENLYSTA [Suspect]
     Active Substance: BELIMUMAB
     Indication: SYSTEMIC LUPUS ERYTHEMATOSUS
     Route: 042
     Dates: start: 20110805, end: 201404
  2. CLONIDINE. [Concomitant]
     Active Substance: CLONIDINE
  3. ZOCOR [Concomitant]
     Active Substance: SIMVASTATIN
  4. IMURAN [Concomitant]
     Active Substance: AZATHIOPRINE
  5. XANAX [Concomitant]
     Active Substance: ALPRAZOLAM
  6. PRILOSEC [Concomitant]
     Active Substance: OMEPRAZOLE MAGNESIUM
  7. ASPIRIN. [Concomitant]
     Active Substance: ASPIRIN
  8. ENALAPRIL [Concomitant]
     Active Substance: ENALAPRIL
  9. COREG [Concomitant]
     Active Substance: CARVEDILOL
  10. PREDNISONE. [Concomitant]
     Active Substance: PREDNISONE
  11. VITAMIN D [Concomitant]
     Active Substance: CHOLECALCIFEROL

REACTIONS (4)
  - Neuralgia [Not Recovered/Not Resolved]
  - Sinusitis [Unknown]
  - Herpes zoster [Unknown]
  - Rash [Recovering/Resolving]

NARRATIVE: CASE EVENT DATE: 20110819
